FAERS Safety Report 20120488 (Version 1)
Quarter: 2021Q4

REPORT INFORMATION
  Report Type: Report from Study
  Country: US (occurrence: US)
  Receive Date: 20211126
  Receipt Date: 20211126
  Transmission Date: 20220303
  Serious: Yes (Hospitalization)
  Sender: FDA-Public Use
  Company Number: US-EXELIXIS-CABO-21046429

PATIENT
  Sex: Male

DRUGS (2)
  1. CABOMETYX [Suspect]
     Active Substance: CABOZANTINIB S-MALATE
     Indication: Adrenal gland cancer
     Dosage: 40 MG, QD
     Dates: start: 20211027
  2. CABOMETYX [Suspect]
     Active Substance: CABOZANTINIB S-MALATE
     Dosage: 40 MG, QD

REACTIONS (6)
  - Chest pain [Unknown]
  - Pyrexia [Unknown]
  - Dyspnoea [Unknown]
  - Blood pressure increased [Unknown]
  - Platelet count decreased [Unknown]
  - Off label use [Unknown]
